FAERS Safety Report 9604488 (Version 1)
Quarter: 2013Q4

REPORT INFORMATION
  Report Type: Spontaneous
  Country: US (occurrence: US)
  Receive Date: 20131008
  Receipt Date: 20131008
  Transmission Date: 20140711
  Serious: Yes (Other)
  Sender: FDA-Public Use
  Company Number: US-PFIZER INC-2013287596

PATIENT
  Sex: Female

DRUGS (1)
  1. LYRICA [Suspect]
     Indication: MUSCULOSKELETAL DISORDER
     Dosage: UNK
     Dates: start: 20130927

REACTIONS (1)
  - Rash generalised [Not Recovered/Not Resolved]
